FAERS Safety Report 8887045 (Version 2)
Quarter: 2013Q1

REPORT INFORMATION
  Report Type: Spontaneous
  Country: DE (occurrence: DE)
  Receive Date: 20121105
  Receipt Date: 20130208
  Transmission Date: 20140127
  Serious: Yes (Hospitalization)
  Sender: FDA-Public Use
  Company Number: DE-UCBSA-070029

PATIENT
  Age: 60 Year
  Sex: Female
  Weight: 71 kg

DRUGS (11)
  1. KEPPRA [Suspect]
     Indication: EPILEPSY
     Route: 048
     Dates: end: 2012
  2. ALLOPURINOL [Suspect]
     Route: 048
     Dates: start: 20120217, end: 20120229
  3. COLCHICUM [Suspect]
     Dosage: 3X2 TABLETS
     Route: 048
     Dates: start: 20120202, end: 20120229
  4. FERRO SANOL [Concomitant]
  5. SIMVASTATIN [Concomitant]
  6. PANTOZOL [Concomitant]
  7. METOCLOPRAMIDE [Concomitant]
  8. TRIAMTEREN/HCT [Concomitant]
     Dosage: 50 MG/25 MG
  9. METHOHEXAL [Concomitant]
  10. NOVOTHYRAL [Concomitant]
  11. KALINOR [Concomitant]

REACTIONS (5)
  - Renal failure acute [Recovered/Resolved]
  - Pancytopenia [Recovered/Resolved]
  - Diarrhoea [Recovered/Resolved]
  - Vomiting [Recovered/Resolved]
  - Nausea [Recovered/Resolved]
